FAERS Safety Report 7268746-8 (Version None)
Quarter: 2011Q1

REPORT INFORMATION
  Report Type: 
  Country: None (occurrence: None)
  Receive Date: 20110201
  Receipt Date: 20110131
  Transmission Date: 20110831
  Serious: Yes (Hospitalization)
  Sender: FDA-Public Use
  Company Number: NO-PFIZER INC-2011021536

PATIENT
  Age: 61 Year
  Sex: Female

DRUGS (4)
  1. ZYRTEC [Concomitant]
     Dosage: 10 MG, UNK
     Route: 048
  2. ATORVASTATIN [Concomitant]
     Dosage: 40 MG, UNK
     Route: 048
  3. CHAMPIX [Suspect]
     Indication: SMOKING CESSATION THERAPY
     Dosage: UNKNOWN
     Route: 048
  4. MODURETIC 5-50 [Concomitant]
     Dosage: UNKNOWN
     Route: 048

REACTIONS (7)
  - BLOOD PRESSURE INCREASED [None]
  - NAUSEA [None]
  - WEIGHT INCREASED [None]
  - DEPRESSION [None]
  - DYSPNOEA [None]
  - DIZZINESS [None]
  - HYPERVENTILATION [None]
